FAERS Safety Report 8013287-3 (Version None)
Quarter: 2011Q4

REPORT INFORMATION
  Report Type: 
  Country: None (occurrence: None)
  Receive Date: 20111229
  Receipt Date: 20111220
  Transmission Date: 20120403
  Serious: Yes (Hospitalization, Other)
  Sender: FDA-Public Use
  Company Number: PHHY2011TW111982

PATIENT
  Sex: Male
  Weight: 49.5 kg

DRUGS (1)
  1. EXJADE [Suspect]
     Dosage: 4 MG, QD
     Route: 048
     Dates: start: 20091214, end: 20111217

REACTIONS (5)
  - DECREASED APPETITE [None]
  - LUNG CONSOLIDATION [None]
  - HYPOGLYCAEMIC COMA [None]
  - LOSS OF CONSCIOUSNESS [None]
  - PNEUMONIA [None]
